FAERS Safety Report 10550905 (Version 3)
Quarter: 2015Q2

REPORT INFORMATION
  Report Type: Spontaneous
  Country: None (occurrence: None)
  Receive Date: 20141020
  Receipt Date: 20150420
  Transmission Date: 20150821
  Serious: No
  Sender: FDA-Public Use
  Company Number: AEGR000604

PATIENT
  Age: 54 Year
  Sex: Female
  Weight: 72.1 kg

DRUGS (15)
  1. AMIODARONE (AMIODARONE HYDROCHLORIDE) [Concomitant]
  2. NORVASC [Concomitant]
     Active Substance: AMLODIPINE BESYLATE
  3. ZETIA [Concomitant]
     Active Substance: EZETIMIBE
  4. LASIX [Concomitant]
     Active Substance: FUROSEMIDE
  5. GRANISETRON (GRANISETRON HYDROCHLORIDE) [Concomitant]
  6. NADOLOL. [Concomitant]
     Active Substance: NADOLOL
  7. CLONIDINE (CLONIDINE HYDROCHLORIDE) [Concomitant]
  8. LUNESTA [Concomitant]
     Active Substance: ESZOPICLONE
  9. JUXTAPID [Suspect]
     Active Substance: LOMITAPIDE MESYLATE
     Indication: TYPE IIA HYPERLIPIDAEMIA
     Route: 048
     Dates: start: 20140711, end: 20140909
  10. ATENOLOL. [Concomitant]
     Active Substance: ATENOLOL
  11. OMEPRAZOLE. [Concomitant]
     Active Substance: OMEPRAZOLE
  12. BRILINTA [Concomitant]
     Active Substance: TICAGRELOR
  13. TIGAN (TRIMETHOBENZAMIDE HYDROCHLORIDE) [Concomitant]
  14. XARELTO [Concomitant]
     Active Substance: RIVAROXABAN
  15. ASPIRIN (ACETYLSALICYLIC ACID) [Concomitant]
     Active Substance: ASPIRIN

REACTIONS (3)
  - Weight decreased [None]
  - Nausea [None]
  - Diarrhoea [None]

NARRATIVE: CASE EVENT DATE: 20140711
